FAERS Safety Report 16509505 (Version 1)
Quarter: 2019Q3

REPORT INFORMATION
  Report Type: Spontaneous
  Country: US (occurrence: US)
  Receive Date: 20190701
  Receipt Date: 20190701
  Transmission Date: 20191004
  Serious: Yes (Hospitalization)
  Sender: FDA-Public Use
  Company Number: None

PATIENT
  Age: 76 Year
  Sex: Male

DRUGS (10)
  1. CYCLOSPORINE MODIFIED [Suspect]
     Active Substance: CYCLOSPORINE
     Indication: RENAL TRANSPLANT
     Route: 048
     Dates: start: 20171025
  2. CYANOCOBALAM, FAMOTIDINE [Concomitant]
  3. LORAZEPAM, PREDNISONE [Concomitant]
  4. ROSUVASTATIN, SMZ/TMP [Concomitant]
  5. CLOPIDOGREL, CRESTOR [Concomitant]
  6. ULORIC [Concomitant]
     Active Substance: FEBUXOSTAT
  7. MYCOPHENOLIC [Suspect]
     Active Substance: MYCOPHENOLIC ACID
     Indication: RENAL TRANSPLANT
     Route: 048
     Dates: start: 20160116
  8. ASPIRIN-LOW, CARVEDILOL [Concomitant]
  9. FUROSEMIDE, GABAPENTIN [Concomitant]
  10. TAMSULOSIN, TIZANIDINE [Concomitant]

REACTIONS (1)
  - Hernia repair [None]

NARRATIVE: CASE EVENT DATE: 20190615
